FAERS Safety Report 8622664-9 (Version None)
Quarter: 2012Q3

REPORT INFORMATION
  Report Type: 
  Country: None (occurrence: None)
  Receive Date: 20120827
  Receipt Date: 20120816
  Transmission Date: 20120928
  Serious: Yes (Other)
  Sender: FDA-Public Use
  Company Number: CA-JNJFOC-20120808426

PATIENT
  Sex: Female
  Weight: 56 kg

DRUGS (7)
  1. LIPITOR [Concomitant]
     Route: 065
  2. FOLIC ACID [Concomitant]
     Route: 065
  3. REMICADE [Suspect]
     Indication: RHEUMATOID ARTHRITIS
     Route: 042
  4. NORVASC [Concomitant]
     Route: 065
  5. FOSAMAX [Concomitant]
     Route: 065
  6. METHOTREXATE SODIUM [Concomitant]
  7. ATACAND [Concomitant]
     Route: 065

REACTIONS (4)
  - STRESS [None]
  - WEIGHT DECREASED [None]
  - INSOMNIA [None]
  - CYST [None]
